FAERS Safety Report 15388140 (Version 2)
Quarter: 2018Q3

REPORT INFORMATION
  Report Type: Spontaneous
  Country: UG (occurrence: UG)
  Receive Date: 20180915
  Receipt Date: 20180924
  Transmission Date: 20181010
  Serious: Yes (Congenital Anomaly)
  Sender: FDA-Public Use
  Company Number: UG-AUROBINDO-AUR-APL-2018-045363

PATIENT
  Sex: Female
  Weight: 3.6 kg

DRUGS (1)
  1. EFAVIRENZ. [Suspect]
     Active Substance: EFAVIRENZ
     Indication: HIV INFECTION
     Dosage: UNK
     Route: 064
     Dates: start: 20180510

REACTIONS (1)
  - Polydactyly [Unknown]
